FAERS Safety Report 9898993 (Version 3)
Quarter: 2014Q1

REPORT INFORMATION
  Report Type: Spontaneous
  Country: JP (occurrence: JP)
  Receive Date: 20140214
  Receipt Date: 20140313
  Transmission Date: 20141002
  Serious: Yes (Life-Threatening, Hospitalization)
  Sender: FDA-Public Use
  Company Number: JP-GLAXOSMITHKLINE-B0968238A

PATIENT
  Age: 91 Year
  Sex: Female
  Weight: 40 kg

DRUGS (6)
  1. VALTREX [Suspect]
     Indication: HERPES ZOSTER
     Dosage: 1000MG THREE TIMES PER DAY
     Route: 048
     Dates: start: 20131214, end: 20131217
  2. LYRICA [Concomitant]
     Indication: NEURALGIA
     Dosage: 75MG PER DAY
     Route: 048
     Dates: start: 20131214
  3. GLIMICRON [Concomitant]
     Route: 048
     Dates: start: 2008
  4. CONIEL [Concomitant]
     Route: 048
     Dates: start: 2008
  5. MICARDIS [Concomitant]
     Route: 048
     Dates: start: 2011
  6. BONALON [Concomitant]
     Route: 048

REACTIONS (3)
  - Renal failure acute [Recovered/Resolved]
  - Dysuria [Unknown]
  - Asthenia [Unknown]
